FAERS Safety Report 10704337 (Version 6)
Quarter: 2015Q4

REPORT INFORMATION
  Report Type: Spontaneous
  Country: FI (occurrence: FI)
  Receive Date: 20150112
  Receipt Date: 20151009
  Transmission Date: 20160304
  Serious: Yes (Death, Other)
  Sender: FDA-Public Use
  Company Number: FI-ROCHE-1518694

PATIENT
  Age: 59 Year
  Sex: Male

DRUGS (15)
  1. IRINOTECAN [Suspect]
     Active Substance: IRINOTECAN
     Route: 065
     Dates: start: 20150220
  2. ASPIRIN CARDIO [Concomitant]
     Active Substance: ASPIRIN
  3. FLUOROURACIL. [Concomitant]
     Active Substance: FLUOROURACIL
     Indication: COLON CANCER METASTATIC
     Dosage: TOTAL 7 CYCLE
     Route: 065
  4. AVASTIN [Suspect]
     Active Substance: BEVACIZUMAB
     Indication: ADENOCARCINOMA OF COLON
     Route: 065
     Dates: start: 20110506, end: 20140426
  5. METFORMIN [Concomitant]
     Active Substance: METFORMIN HYDROCHLORIDE
  6. CARDACE (FINLAND) [Concomitant]
  7. XELODA [Suspect]
     Active Substance: CAPECITABINE
     Indication: ADENOCARCINOMA OF COLON
     Route: 065
     Dates: start: 20110506, end: 20140426
  8. PANITUMUMAB [Concomitant]
     Active Substance: PANITUMUMAB
     Indication: ADENOCARCINOMA OF COLON
     Route: 065
     Dates: start: 20150220
  9. LEUCOVORIN. [Concomitant]
     Active Substance: LEUCOVORIN
     Indication: COLON CANCER METASTATIC
     Dosage: TOTLA 7 CYCLE
     Route: 065
  10. AMARYL [Concomitant]
     Active Substance: GLIMEPIRIDE
  11. XELODA [Suspect]
     Active Substance: CAPECITABINE
     Route: 065
     Dates: start: 20140516, end: 20150129
  12. IRINOTECAN [Suspect]
     Active Substance: IRINOTECAN
     Indication: ADENOCARCINOMA OF COLON
     Route: 065
     Dates: start: 20110506, end: 20110909
  13. IRINOTECAN [Suspect]
     Active Substance: IRINOTECAN
     Route: 065
     Dates: start: 20130620, end: 20140426
  14. LESCOL [Concomitant]
     Active Substance: FLUVASTATIN SODIUM
  15. OXALIPLATIN. [Concomitant]
     Active Substance: OXALIPLATIN
     Indication: ADENOCARCINOMA OF COLON
     Route: 065
     Dates: start: 20140516, end: 20150129

REACTIONS (13)
  - Venous thrombosis limb [Recovered/Resolved]
  - Haemorrhoids [Unknown]
  - Neurotoxicity [Unknown]
  - Alopecia [Unknown]
  - Metastases to bone [Unknown]
  - Pulmonary embolism [Recovered/Resolved]
  - Stomatitis [Unknown]
  - Haematotoxicity [Unknown]
  - Acne [Unknown]
  - Dry skin [Unknown]
  - Skin toxicity [Unknown]
  - Hypomagnesaemia [Unknown]
  - Constipation [Unknown]

NARRATIVE: CASE EVENT DATE: 201207
